FAERS Safety Report 9126039 (Version 3)
Quarter: 2013Q2

REPORT INFORMATION
  Report Type: Report from Study
  Country: FR (occurrence: FR)
  Receive Date: 20130117
  Receipt Date: 20130605
  Transmission Date: 20140414
  Serious: Yes (Hospitalization)
  Sender: FDA-Public Use
  Company Number: FR-ROCHE-1180515

PATIENT
  Age: 69 Year
  Sex: Female
  Weight: 77 kg

DRUGS (8)
  1. BEVACIZUMAB [Suspect]
     Indication: BREAST CANCER
     Dosage: DATE OF LAST DOSE PRIOR TO SAE-12/DEC/2012
     Route: 042
     Dates: start: 20121212
  2. PACLITAXEL [Suspect]
     Indication: BREAST CANCER
     Dosage: DATE OF LAST DOSE PRIOR TO SAE-12/DEC/2012
     Route: 042
     Dates: start: 20121212
  3. PACLITAXEL [Suspect]
     Dosage: REINTRODUCED
     Route: 042
  4. POLARAMINE [Concomitant]
     Route: 042
  5. RANITIDINE [Concomitant]
     Route: 042
  6. ZOPHREN [Concomitant]
     Route: 042
  7. VOGALENE [Concomitant]
     Route: 048
  8. FORLAX (FRANCE) [Concomitant]

REACTIONS (1)
  - Pleural effusion [Recovered/Resolved]
